FAERS Safety Report 9325700 (Version 2)
Quarter: 2013Q2

REPORT INFORMATION
  Report Type: Report from Study
  Country: FR (occurrence: FR)
  Receive Date: 20130604
  Receipt Date: 20130607
  Transmission Date: 20140414
  Serious: Yes (Death)
  Sender: FDA-Public Use
  Company Number: PHHY2013FR055864

PATIENT
  Age: 69 Year
  Sex: Male

DRUGS (1)
  1. ICL670A [Suspect]
     Indication: IRON OVERLOAD
     Dosage: UNK UKN, UNK
     Dates: start: 20090402, end: 20091031

REACTIONS (4)
  - Respiratory distress [Fatal]
  - Lung disorder [Fatal]
  - Pyrexia [Fatal]
  - Pancytopenia [Fatal]
